FAERS Safety Report 12851315 (Version 2)
Quarter: 2016Q4

REPORT INFORMATION
  Report Type: Report from Study
  Country: RO (occurrence: RO)
  Receive Date: 20161015
  Receipt Date: 20161121
  Transmission Date: 20170207
  Serious: Yes (Death, Life-Threatening, Hospitalization, Disabling)
  Sender: FDA-Public Use
  Company Number: RO-B.I. PHARMACEUTICALS,INC./RIDGEFIELD-2016-BI-066317

PATIENT
  Age: 79 Year
  Sex: Female
  Weight: 89.6 kg

DRUGS (1)
  1. BLINDED LINAGLIPTIN [Suspect]
     Active Substance: LINAGLIPTIN
     Indication: DIABETES MELLITUS
     Route: 048
     Dates: start: 20150128, end: 20161003

REACTIONS (1)
  - Meningoencephalitis bacterial [Fatal]

NARRATIVE: CASE EVENT DATE: 20161004
